FAERS Safety Report 4682942-5 (Version None)
Quarter: 2005Q2

REPORT INFORMATION
  Report Type: 
  Country: None (occurrence: None)
  Receive Date: 20050602
  Receipt Date: 20050321
  Transmission Date: 20051028
  Serious: No
  Sender: FDA-Public Use
  Company Number: USA050393655

PATIENT
  Age: 51 Year
  Sex: Female
  Weight: 54 kg

DRUGS (4)
  1. CYMBALTA [Suspect]
     Indication: BIPOLAR DISORDER
     Dosage: 30 MG DAY
  2. TOPAMAX [Concomitant]
  3. TEMAZEPAM [Concomitant]
  4. LORAZEPAM [Concomitant]

REACTIONS (1)
  - BLOOD URINE PRESENT [None]
